FAERS Safety Report 5716256-9 (Version None)
Quarter: 2008Q2

REPORT INFORMATION
  Report Type: 
  Country: None (occurrence: None)
  Receive Date: 20080424
  Receipt Date: 20080417
  Transmission Date: 20081010
  Serious: Yes (Other)
  Sender: FDA-Public Use
  Company Number: A0723898A

PATIENT
  Age: 35 Year
  Sex: Female

DRUGS (2)
  1. ZYBAN [Suspect]
     Dosage: 150MG PER DAY
     Route: 048
     Dates: start: 20080401, end: 20080404
  2. GRAVOL TAB [Concomitant]

REACTIONS (6)
  - DISTURBANCE IN ATTENTION [None]
  - FEELING JITTERY [None]
  - INSOMNIA [None]
  - NEGATIVE THOUGHTS [None]
  - NIGHT SWEATS [None]
  - SUICIDAL IDEATION [None]
